FAERS Safety Report 18575391 (Version 6)
Quarter: 2024Q3

REPORT INFORMATION
  Report Type: Spontaneous
  Country: US (occurrence: US)
  Receive Date: 20201203
  Receipt Date: 20240814
  Transmission Date: 20241016
  Serious: Yes (Other)
  Sender: PFIZER
  Company Number: US-PFIZER INC-2020475749

PATIENT
  Age: 63 Year
  Sex: Female
  Weight: 47.17 kg

DRUGS (5)
  1. LORBRENA [Suspect]
     Active Substance: LORLATINIB
     Indication: Non-small cell lung cancer metastatic
     Dosage: 100 MG, ONCE DAILY
     Route: 048
     Dates: start: 202001
  2. LORBRENA [Suspect]
     Active Substance: LORLATINIB
     Indication: Lung cancer metastatic
     Dosage: 75 MG, DAILY
     Route: 048
  3. LORBRENA [Suspect]
     Active Substance: LORLATINIB
     Dosage: 50 MG, DAILY
     Route: 048
  4. LORBRENA [Suspect]
     Active Substance: LORLATINIB
     Dosage: 25 MG, DAILY
     Route: 048
  5. XARELTO [Concomitant]
     Active Substance: RIVAROXABAN
     Indication: Anticoagulant therapy
     Dosage: 10 MG, 1X/DAY

REACTIONS (13)
  - Cystitis [Recovered/Resolved]
  - Vesicoureteric reflux [Recovered/Resolved]
  - Abdominal distension [Recovered/Resolved]
  - Disease recurrence [Recovered/Resolved]
  - Diaphragmatic disorder [Recovered/Resolved]
  - Gastric dilatation [Recovered/Resolved]
  - Abdominal discomfort [Recovered/Resolved]
  - Dyspepsia [Recovered/Resolved]
  - Fluid retention [Recovered/Resolved]
  - Abdominal rigidity [Recovered/Resolved]
  - Emotional distress [Recovered/Resolved]
  - Decreased appetite [Recovered/Resolved]
  - Malaise [Recovered/Resolved]

NARRATIVE: CASE EVENT DATE: 20200101
